FAERS Safety Report 22288977 (Version 3)
Quarter: 2023Q2

REPORT INFORMATION
  Report Type: Spontaneous
  Country: RO (occurrence: RO)
  Receive Date: 20230505
  Receipt Date: 20230530
  Transmission Date: 20230721
  Serious: Yes (Death, Hospitalization)
  Sender: FDA-Public Use
  Company Number: RO-ELI_LILLY_AND_COMPANY-RO202305002388

PATIENT
  Age: 59 Year
  Sex: Male
  Weight: 82 kg

DRUGS (3)
  1. OLUMIANT [Suspect]
     Active Substance: BARICITINIB
     Indication: Rheumatoid arthritis
     Dosage: 4 MG, DAILY
     Route: 065
     Dates: start: 202201
  2. LERIDIP [Concomitant]
     Indication: Product used for unknown indication
     Dosage: 20 MG, DAILY
     Route: 065
  3. ATACAND [Concomitant]
     Active Substance: CANDESARTAN CILEXETIL
     Indication: Product used for unknown indication
     Dosage: 16 MG, DAILY
     Route: 065

REACTIONS (2)
  - Cerebrovascular accident [Fatal]
  - Hypertension [Fatal]

NARRATIVE: CASE EVENT DATE: 20230320
